FAERS Safety Report 6566109-1 (Version None)
Quarter: 2010Q1

REPORT INFORMATION
  Report Type: 
  Country: None (occurrence: None)
  Receive Date: 20100202
  Receipt Date: 20100119
  Transmission Date: 20100710
  Serious: No
  Sender: FDA-Public Use
  Company Number: US-JNJFOC-20091206634

PATIENT
  Sex: Female
  Weight: 88.45 kg

DRUGS (3)
  1. DURAGESIC-100 [Suspect]
     Indication: PAIN
     Dosage: 50458 0034 05
     Route: 062
  2. DURAGESIC-100 [Suspect]
     Dosage: 50458 0091 05
     Route: 062
  3. UNKNOWN MULTIPLE MEDICATION [Concomitant]
     Route: 065

REACTIONS (3)
  - PRODUCT ADHESION ISSUE [None]
  - PRODUCT QUALITY ISSUE [None]
  - WRONG TECHNIQUE IN DRUG USAGE PROCESS [None]
